FAERS Safety Report 12158807 (Version 1)
Quarter: 2016Q1

REPORT INFORMATION
  Report Type: Spontaneous
  Country: US (occurrence: US)
  Receive Date: 20160308
  Receipt Date: 20160308
  Transmission Date: 20160526
  Serious: No
  Sender: FDA-Public Use
  Company Number: US-JNJFOC-20160201395

PATIENT
  Sex: Female

DRUGS (4)
  1. TYLENOL EXTRA STRENGTH [Suspect]
     Active Substance: ACETAMINOPHEN
     Indication: OROPHARYNGEAL PAIN
     Route: 048
     Dates: start: 20160129
  2. IBUPROFEN. [Concomitant]
     Active Substance: IBUPROFEN
     Indication: PYREXIA
     Route: 065
     Dates: start: 20160129, end: 20160130
  3. TYLENOL EXTRA STRENGTH [Suspect]
     Active Substance: ACETAMINOPHEN
     Indication: PYREXIA
     Route: 048
     Dates: start: 20160129
  4. IBUPROFEN. [Concomitant]
     Active Substance: IBUPROFEN
     Indication: OROPHARYNGEAL PAIN
     Route: 065
     Dates: start: 20160129, end: 20160130

REACTIONS (3)
  - Product use issue [Unknown]
  - Therapeutic response unexpected [Unknown]
  - Off label use [Unknown]

NARRATIVE: CASE EVENT DATE: 20160130
